FAERS Safety Report 7414814-7 (Version None)
Quarter: 2011Q2

REPORT INFORMATION
  Report Type: 
  Country: None (occurrence: None)
  Receive Date: 20110406
  Receipt Date: 20110322
  Transmission Date: 20111010
  Serious: Yes (Death, Life-Threatening, Hospitalization, Other)
  Sender: FDA-Public Use
  Company Number: 2011MA002727

PATIENT
  Age: 44 Year
  Sex: Male

DRUGS (8)
  1. OLANZAPINE [Concomitant]
  2. GABAPENTIN [Concomitant]
  3. PAROXETINE HCL [Concomitant]
  4. CLONAZEPAM [Suspect]
     Dosage: 1 MG, TID, PO
     Route: 048
  5. QUETIAPINE [Concomitant]
  6. LEVOTHYROXINE [Concomitant]
  7. OMEPRAZOLE [Concomitant]
  8. VALSARTAN [Concomitant]

REACTIONS (18)
  - DRUG SCREEN POSITIVE [None]
  - HYPOTHERMIA [None]
  - BLOOD LACTIC ACID [None]
  - HYPOXIC-ISCHAEMIC ENCEPHALOPATHY [None]
  - BRAIN INJURY [None]
  - ABNORMAL BEHAVIOUR [None]
  - BLOOD CREATINE PHOSPHOKINASE [None]
  - BLOOD CALCIUM DECREASED [None]
  - UNRESPONSIVE TO STIMULI [None]
  - ELECTROCARDIOGRAM ST SEGMENT DEPRESSION [None]
  - HYPOTENSION [None]
  - BLOOD THYROID STIMULATING HORMONE [None]
  - COMA [None]
  - HYPONATRAEMIA [None]
  - CARDIAC ARREST [None]
  - BLOOD CREATINE PHOSPHOKINASE MB INCREASED [None]
  - PULSE ABSENT [None]
  - BLOOD GLUCOSE INCREASED [None]
